FAERS Safety Report 6287726-2 (Version None)
Quarter: 2009Q3

REPORT INFORMATION
  Report Type: 
  Country: None (occurrence: None)
  Receive Date: 20090727
  Receipt Date: 20090727
  Transmission Date: 20100115
  Serious: Yes (Other)
  Sender: FDA-Public Use
  Company Number: None

PATIENT
  Age: 39 Year
  Sex: Female
  Weight: 106.5953 kg

DRUGS (2)
  1. FENTANYL-25 [Suspect]
     Indication: PAIN
     Dosage: 25MCG, HR, TRANSDERMAL
     Route: 062
     Dates: start: 20090715, end: 20090719
  2. FENTANYL-25 [Suspect]
     Indication: PAIN
     Dosage: 25MCG, HR, TRANSDERMAL
     Route: 062
     Dates: start: 20090725, end: 20090725

REACTIONS (7)
  - BACK INJURY [None]
  - DEVICE ADHESION ISSUE [None]
  - DIZZINESS [None]
  - FEELING ABNORMAL [None]
  - FLUID INTAKE REDUCED [None]
  - NAUSEA [None]
  - PRODUCT QUALITY ISSUE [None]
